FAERS Safety Report 6806610-6 (Version None)
Quarter: 2010Q2

REPORT INFORMATION
  Report Type: 
  Country: None (occurrence: None)
  Receive Date: 20100629
  Receipt Date: 20080626
  Transmission Date: 20101027
  Serious: Yes (Other)
  Sender: FDA-Public Use
  Company Number: US-PFIZER INC-2008026441

PATIENT
  Sex: Female
  Weight: 114 kg

DRUGS (27)
  1. SILDENAFIL CITRATE [Suspect]
     Indication: PULMONARY ARTERIAL HYPERTENSION
     Dates: start: 20080217, end: 20080321
  2. DUONEB [Concomitant]
  3. XANAX [Concomitant]
  4. ACETYLSALICYLIC ACID [Concomitant]
  5. BISACODYL [Concomitant]
  6. PERIDEX [Concomitant]
  7. CELEXA [Concomitant]
  8. COLACE [Concomitant]
  9. FENTANYL [Concomitant]
  10. IRON [Concomitant]
  11. SODIUM PHOSPHATES [Concomitant]
  12. LASIX [Concomitant]
  13. HEPARIN [Concomitant]
  14. INSULIN [Concomitant]
  15. NOVOLOG [Concomitant]
  16. VICODIN [Concomitant]
  17. LOPERAMIDE [Concomitant]
  18. ATIVAN [Concomitant]
  19. MILK OF MAGNESIA TAB [Concomitant]
  20. REGLAN [Concomitant]
  21. MULTI-VITAMINS [Concomitant]
  22. THERAPEUTIC MULTIVITAMINS [Concomitant]
  23. INVANZ [Concomitant]
  24. PROTONIX [Concomitant]
  25. POTASSIUM CHLORIDE [Concomitant]
  26. OCEAN NASAL SPRAY [Concomitant]
  27. ALBUMIN (HUMAN) [Concomitant]

REACTIONS (4)
  - BLOOD GLUCOSE [None]
  - BLOOD POTASSIUM ABNORMAL [None]
  - CARBON DIOXIDE ABNORMAL [None]
  - DEAFNESS [None]
